FAERS Safety Report 23907393 (Version 1)
Quarter: 2024Q2

REPORT INFORMATION
  Report Type: Spontaneous
  Country: CA (occurrence: CA)
  Receive Date: 20240528
  Receipt Date: 20240528
  Transmission Date: 20240716
  Serious: Yes (Other)
  Sender: FDA-Public Use
  Company Number: CA-AUROBINDO-AUR-APL-2024-024714

PATIENT
  Age: 17 Year
  Sex: Male
  Weight: 56 kg

DRUGS (3)
  1. METHOTREXATE [Suspect]
     Active Substance: METHOTREXATE
     Indication: Crohn^s disease
     Dosage: 10 MILLIGRAM, EVERY WEEK
     Route: 048
  2. METHOTREXATE [Suspect]
     Active Substance: METHOTREXATE
     Dosage: 1 DOSAGE FORM
     Route: 065
  3. FOLIC ACID [Concomitant]
     Active Substance: FOLIC ACID
     Indication: Product used for unknown indication
     Dosage: 5 MILLIGRAM
     Route: 065

REACTIONS (2)
  - Haematochezia [Not Recovered/Not Resolved]
  - Off label use [Not Recovered/Not Resolved]
